FAERS Safety Report 11264396 (Version 2)
Quarter: 2015Q3

REPORT INFORMATION
  Report Type: Spontaneous
  Country: US (occurrence: US)
  Receive Date: 20150713
  Receipt Date: 20150901
  Transmission Date: 20151125
  Serious: Yes (Other)
  Sender: FDA-Public Use
  Company Number: US-JNJFOC-20150617255

PATIENT
  Age: 48 Year
  Sex: Female
  Weight: 68.04 kg

DRUGS (2)
  1. REMICADE [Suspect]
     Active Substance: INFLIXIMAB
     Indication: SERONEGATIVE ARTHRITIS
     Dosage: 0, 2, 6 AND 8 WEEKS
     Route: 042
     Dates: start: 20150414, end: 20150724
  2. REMICADE [Suspect]
     Active Substance: INFLIXIMAB
     Indication: UVEITIS
     Dosage: 0, 2, 6 AND 8 WEEKS
     Route: 042
     Dates: start: 20150414, end: 20150724

REACTIONS (4)
  - Urticaria [Recovered/Resolved]
  - Escherichia urinary tract infection [Recovered/Resolved]
  - Product use issue [Unknown]
  - Rash [Recovered/Resolved]

NARRATIVE: CASE EVENT DATE: 20150414
